FAERS Safety Report 7887342-2 (Version None)
Quarter: 2011Q4

REPORT INFORMATION
  Report Type: 
  Country: None (occurrence: None)
  Receive Date: 20111102
  Receipt Date: 20110718
  Transmission Date: 20120403
  Serious: No
  Sender: FDA-Public Use
  Company Number: US-AMGEN-USASP2011036357

PATIENT
  Age: 62 Year
  Sex: Female
  Weight: 64.399 kg

DRUGS (9)
  1. GABAPENTIN [Concomitant]
     Dosage: 100 MG, UNK
     Route: 048
  2. VYTORIN [Concomitant]
     Dosage: 10 MG, UNK
     Route: 048
  3. ARAVA [Concomitant]
     Route: 048
  4. FOSAMAX [Concomitant]
  5. ENBREL [Suspect]
     Indication: PRODUCT USED FOR UNKNOWN INDICATION
     Dosage: 50 MG, QWK
  6. TOPROL-XL [Concomitant]
     Dosage: 100 MG, UNK
  7. OMEPRAZOLE [Concomitant]
     Dosage: 20 MG, UNK
     Route: 048
  8. NAPROXEN [Concomitant]
     Route: 048
  9. PREDNISONE [Concomitant]

REACTIONS (2)
  - TERMINAL INSOMNIA [None]
  - INITIAL INSOMNIA [None]
